FAERS Safety Report 9456150 (Version 2)
Quarter: 2014Q1

REPORT INFORMATION
  Report Type: Spontaneous
  Country: US (occurrence: US)
  Receive Date: 20130813
  Receipt Date: 20140117
  Transmission Date: 20141002
  Serious: Yes (Hospitalization)
  Sender: FDA-Public Use
  Company Number: US-B.I. PHARMACEUTICALS,INC./RIDGEFIELD-2013-BI-24532BP

PATIENT
  Age: 92 Year
  Sex: Female
  Weight: 57.15 kg

DRUGS (18)
  1. PRADAXA [Suspect]
     Indication: ATRIAL FIBRILLATION
     Dates: start: 20120329, end: 20120617
  2. ACETAMINOPHEN [Concomitant]
  3. ALBUTEROL [Concomitant]
  4. BUSPIRONE HCL [Concomitant]
  5. CERTA-VITE [Concomitant]
  6. DIGOXIN [Concomitant]
  7. DILTIAZEM [Concomitant]
  8. EVISTA [Concomitant]
  9. FLOVENT [Concomitant]
  10. FUROSEMIDE [Concomitant]
  11. KLOR-CON [Concomitant]
  12. MIRTAZAPINE [Concomitant]
  13. MUCINEX [Concomitant]
  14. NEXIUM [Concomitant]
  15. PREDNISONE [Concomitant]
  16. PROAIR [Concomitant]
  17. SINGULAIR [Concomitant]
  18. VITAMIN D3 [Concomitant]

REACTIONS (3)
  - Haemorrhage [Unknown]
  - Anaemia [Unknown]
  - Contusion [Unknown]
